FAERS Safety Report 25789917 (Version 1)
Quarter: 2025Q3

REPORT INFORMATION
  Report Type: Spontaneous
  Country: US (occurrence: US)
  Receive Date: 20250911
  Receipt Date: 20250911
  Transmission Date: 20251021
  Serious: Yes (Hospitalization)
  Sender: BOEHRINGER INGELHEIM
  Company Number: US-BoehringerIngelheim-2025-BI-093789

PATIENT

DRUGS (1)
  1. JARDIANCE [Suspect]
     Active Substance: EMPAGLIFLOZIN
     Indication: Product used for unknown indication

REACTIONS (5)
  - Pain [Unknown]
  - Bladder pain [Unknown]
  - Pollakiuria [Unknown]
  - Dehydration [Unknown]
  - Acidosis [Unknown]

NARRATIVE: CASE EVENT DATE: 20250715
